FAERS Safety Report 24269157 (Version 1)
Quarter: 2024Q3

REPORT INFORMATION
  Report Type: Report from Study
  Country: US (occurrence: None)
  Receive Date: 20240830
  Receipt Date: 20240830
  Transmission Date: 20241017
  Serious: Yes (Hospitalization)
  Sender: ASTRAZENECA
  Company Number: 2024A193341

PATIENT
  Age: 70 Year
  Sex: Male
  Weight: 78.9 kg

DRUGS (1)
  1. CALQUENCE [Suspect]
     Active Substance: ACALABRUTINIB
     Route: 048

REACTIONS (5)
  - Blood albumin decreased [Unknown]
  - Ascites [Unknown]
  - Liver disorder [Unknown]
  - Peripheral swelling [Unknown]
  - Pneumonia [Unknown]
